FAERS Safety Report 9671898 (Version 1)
Quarter: 2013Q4

REPORT INFORMATION
  Report Type: Spontaneous
  Country: US (occurrence: US)
  Receive Date: 20131106
  Receipt Date: 20131106
  Transmission Date: 20140711
  Serious: No
  Sender: FDA-Public Use
  Company Number: US-ENDO PHARMACEUTICALS INC.-BACL20130011

PATIENT
  Age: 66 Year
  Sex: Female

DRUGS (4)
  1. BACLOFEN TABLETS 20MG [Suspect]
     Indication: MUSCLE RELAXANT THERAPY
     Route: 048
     Dates: start: 20130720, end: 20130722
  2. BACLOFEN TABLETS 20MG [Suspect]
     Indication: MUSCLE SPASMS
  3. BACLOFEN [Concomitant]
     Indication: MUSCLE RELAXANT THERAPY
     Route: 048
     Dates: end: 20130719
  4. BACLOFEN [Concomitant]
     Indication: MUSCLE SPASMS

REACTIONS (5)
  - Blood pressure increased [Unknown]
  - Blood pressure fluctuation [Unknown]
  - Palpitations [Unknown]
  - Insomnia [Unknown]
  - Drug effect decreased [Recovered/Resolved]
